FAERS Safety Report 10146998 (Version 1)
Quarter: 2014Q2

REPORT INFORMATION
  Report Type: Spontaneous
  Country: FR (occurrence: FR)
  Receive Date: 20140501
  Receipt Date: 20140501
  Transmission Date: 20141212
  Serious: Yes (Hospitalization)
  Sender: FDA-Public Use
  Company Number: FR-GLAXOSMITHKLINE-B0987782A

PATIENT
  Age: 33 Year
  Sex: Male

DRUGS (9)
  1. ZELITREX [Suspect]
     Dosage: 500MG TWICE PER DAY
     Route: 048
     Dates: start: 201401
  2. VFEND [Suspect]
     Dosage: 240MG TWICE PER DAY
     Route: 065
     Dates: start: 201401, end: 20140325
  3. NEORAL [Suspect]
     Dosage: 75MG TWICE PER DAY
     Route: 065
     Dates: start: 201401, end: 20140328
  4. FANSIDAR [Suspect]
     Dosage: 1TAB THREE TIMES PER WEEK
     Route: 048
     Dates: start: 201401
  5. ENTOCORT [Suspect]
     Dosage: 9MG PER DAY
     Route: 065
     Dates: end: 20140401
  6. DELURSAN [Concomitant]
     Dosage: 500MG THREE TIMES PER DAY
     Route: 065
  7. GENTALLINE [Concomitant]
     Indication: ILL-DEFINED DISORDER
     Dosage: 40MG TWICE PER DAY
     Route: 065
  8. IMODIUM [Concomitant]
     Route: 065
  9. CODEINE PHOSPHATE [Concomitant]
     Route: 065

REACTIONS (5)
  - Hepatitis [Not Recovered/Not Resolved]
  - Jaundice [Recovered/Resolved]
  - Leukopenia [Recovering/Resolving]
  - Haemolytic anaemia [Not Recovered/Not Resolved]
  - Thrombocytopenia [Not Recovered/Not Resolved]
